FAERS Safety Report 6610799-1 (Version None)
Quarter: 2010Q1

REPORT INFORMATION
  Report Type: 
  Country: None (occurrence: None)
  Receive Date: 20100302
  Receipt Date: 20100223
  Transmission Date: 20100710
  Serious: Yes (Death, Hospitalization)
  Sender: FDA-Public Use
  Company Number: PH-BAXTER-2010BH004893

PATIENT
  Age: 25 Year
  Sex: Male

DRUGS (1)
  1. DIANEAL [Suspect]
     Indication: PERITONEAL DIALYSIS
     Route: 033
     Dates: start: 20071123

REACTIONS (4)
  - ASTHENIA [None]
  - HYPOPHAGIA [None]
  - PERITONITIS [None]
  - SEPSIS [None]
